FAERS Safety Report 5308079-X (Version None)
Quarter: 2007Q2

REPORT INFORMATION
  Report Type: 
  Country: None (occurrence: None)
  Receive Date: 20070426
  Receipt Date: 20070418
  Transmission Date: 20071010
  Serious: Yes (Other)
  Sender: FDA-Public Use
  Company Number: PHEH2007US05740

PATIENT
  Age: 65 Year
  Sex: Female

DRUGS (1)
  1. ZELNORM [Suspect]
     Indication: CONSTIPATION
     Dosage: 6 MG, BID
     Route: 048
     Dates: start: 20020101, end: 20070416

REACTIONS (5)
  - BLADDER OPERATION [None]
  - BRONCHITIS [None]
  - MUSCULAR WEAKNESS [None]
  - PARAESTHESIA [None]
  - URINARY INCONTINENCE [None]
